FAERS Safety Report 17003396 (Version 4)
Quarter: 2019Q4

REPORT INFORMATION
  Report Type: Spontaneous
  Country: AU (occurrence: AU)
  Receive Date: 20191107
  Receipt Date: 20191227
  Transmission Date: 20200122
  Serious: Yes (Hospitalization, Other)
  Sender: FDA-Public Use
  Company Number: AU-ABBVIE-19K-008-2991299-00

PATIENT
  Age: 10 Year
  Sex: Female
  Weight: 32.6 kg

DRUGS (7)
  1. AZATHIOPRINE. [Concomitant]
     Active Substance: AZATHIOPRINE
     Indication: CROHN^S DISEASE
     Route: 048
  2. BUSCOPAN [Concomitant]
     Active Substance: BUTYLSCOPOLAMINE BROMIDE
     Indication: PRODUCT USED FOR UNKNOWN INDICATION
     Dosage: AS NEEDED
     Route: 048
  3. PARACETAMOL [Concomitant]
     Active Substance: ACETAMINOPHEN
     Indication: PRODUCT USED FOR UNKNOWN INDICATION
     Dosage: AS NEEDED
     Route: 048
  4. TRAMADOL. [Concomitant]
     Active Substance: TRAMADOL
     Indication: PRODUCT USED FOR UNKNOWN INDICATION
     Dosage: 25-50 MG ?AS NEEDED
     Route: 048
  5. OXYBUTYNIN. [Concomitant]
     Active Substance: OXYBUTYNIN CHLORIDE
     Indication: PRODUCT USED FOR UNKNOWN INDICATION
     Dosage: AS NEEDED
     Route: 048
  6. HUMIRA [Suspect]
     Active Substance: ADALIMUMAB
     Indication: CROHN^S DISEASE
     Route: 058
     Dates: start: 20191003, end: 2019
  7. HUMIRA [Suspect]
     Active Substance: ADALIMUMAB
     Indication: ANORECTAL DISORDER
     Route: 058
     Dates: start: 20191101

REACTIONS (16)
  - Loss of consciousness [Unknown]
  - Dysuria [Unknown]
  - Intestinal perforation [Recovering/Resolving]
  - Abdominal pain [Recovering/Resolving]
  - Pelvic fluid collection [Unknown]
  - Drug specific antibody present [Unknown]
  - Vomiting [Unknown]
  - Fall [Unknown]
  - Cellulitis [Recovered/Resolved]
  - Screaming [Recovering/Resolving]
  - General physical health deterioration [Unknown]
  - Intra-abdominal fluid collection [Unknown]
  - Drug ineffective [Unknown]
  - Small intestinal obstruction [Unknown]
  - Immune system disorder [Recovering/Resolving]
  - Pelvic exploration [Unknown]

NARRATIVE: CASE EVENT DATE: 2019
